FAERS Safety Report 7433114-2 (Version None)
Quarter: 2011Q2

REPORT INFORMATION
  Report Type: 
  Country: None (occurrence: None)
  Receive Date: 20110422
  Receipt Date: 20110415
  Transmission Date: 20111010
  Serious: No
  Sender: FDA-Public Use
  Company Number: US-B.I. PHARMACEUTICALS,INC./RIDGEFIELD-2011-BP-02257BP

PATIENT
  Age: 49 Year
  Sex: Female
  Weight: 119.29 kg

DRUGS (7)
  1. POTASSIUM CHLORIDE [Concomitant]
     Indication: UNEVALUABLE INVESTIGATION
     Dosage: 20 MEQ
     Route: 048
  2. METOPROLOL [Concomitant]
     Indication: ATRIAL FIBRILLATION
     Dosage: 50 MG
     Route: 048
     Dates: start: 20110110
  3. MULTI-VITAMIN [Concomitant]
     Indication: SUPPLEMENTATION THERAPY
     Route: 048
  4. IRON SUPPLEMENT [Concomitant]
     Indication: SUPPLEMENTATION THERAPY
     Dosage: ONE DAILY
     Route: 048
  5. LASIX [Concomitant]
     Indication: OEDEMA
     Dosage: 20 MG
     Route: 048
  6. PRADAXA [Suspect]
     Indication: ATRIAL FIBRILLATION
     Dosage: 300 MG
     Route: 048
     Dates: start: 20110118
  7. ASPIRIN [Concomitant]
     Dates: start: 20110110

REACTIONS (1)
  - MEDICATION RESIDUE [None]
